FAERS Safety Report 11325690 (Version 4)
Quarter: 2015Q4

REPORT INFORMATION
  Report Type: Report from Study
  Country: JP (occurrence: JP)
  Receive Date: 20150731
  Receipt Date: 20151222
  Transmission Date: 20160304
  Serious: Yes (Hospitalization, Other)
  Sender: FDA-Public Use
  Company Number: JP-BRISTOL-MYERS SQUIBB COMPANY-BMS-2015-050231

PATIENT
  Age: 73 Year
  Sex: Female
  Weight: 46 kg

DRUGS (8)
  1. ALDACTONE A [Suspect]
     Active Substance: SPIRONOLACTONE
     Indication: COR PULMONALE
     Dosage: 25 MG, UNK
     Route: 048
     Dates: end: 20141111
  2. RABEPRAZOLE SODIUM. [Concomitant]
     Active Substance: RABEPRAZOLE SODIUM
     Indication: PROPHYLAXIS
     Dosage: 10 MG, QD
     Route: 048
  3. APIXABAN [Suspect]
     Active Substance: APIXABAN
     Dosage: 5 MG, BID
     Route: 048
     Dates: start: 20150316, end: 20150513
  4. LANIRAPID [Concomitant]
     Active Substance: METILDIGOXIN
     Indication: HYPERTENSION
     Dosage: 0.1 MG, QD
     Route: 048
  5. LUPRAC [Concomitant]
     Active Substance: TORSEMIDE
     Indication: COR PULMONALE
     Dosage: 4 MG, QD
     Route: 048
  6. AMBROXOL HYDROCHLORIDE [Concomitant]
     Active Substance: AMBROXOL HYDROCHLORIDE
     Indication: ATYPICAL MYCOBACTERIAL INFECTION
     Dosage: 45 MG, QD
     Route: 048
     Dates: end: 20150412
  7. KLARICID                           /00984601/ [Concomitant]
     Active Substance: CLARITHROMYCIN
     Indication: ATYPICAL MYCOBACTERIAL INFECTION
     Dosage: 200 MG, QD
     Route: 048
     Dates: start: 20140716, end: 20150412
  8. APIXABAN [Suspect]
     Active Substance: APIXABAN
     Indication: CEREBROVASCULAR ACCIDENT PROPHYLAXIS
     Dosage: 5 MG, BID
     Route: 048
     Dates: start: 20140702

REACTIONS (8)
  - Rib fracture [Recovered/Resolved]
  - Influenza [Recovered/Resolved]
  - Blood pressure increased [Recovered/Resolved]
  - Fall [Recovered/Resolved]
  - Traumatic haemothorax [Recovered/Resolved]
  - Fracture treatment [Unknown]
  - Lung lobectomy [Unknown]
  - Hyperkalaemia [Recovered/Resolved]

NARRATIVE: CASE EVENT DATE: 20141112
